FAERS Safety Report 21999654 (Version 3)
Quarter: 2023Q2

REPORT INFORMATION
  Report Type: Report from Study
  Country: US (occurrence: US)
  Receive Date: 20230216
  Receipt Date: 20230404
  Transmission Date: 20230721
  Serious: Yes (Other)
  Sender: FDA-Public Use
  Company Number: US-002147023-NVSC2023US030430

PATIENT
  Sex: Female

DRUGS (1)
  1. TASIGNA [Suspect]
     Active Substance: NILOTINIB
     Indication: Philadelphia positive chronic myeloid leukaemia
     Dosage: 150 MG, QD (FOR ALMOST 6 YEARS)
     Route: 048

REACTIONS (11)
  - Biliary obstruction [Recovered/Resolved]
  - Cardiovascular insufficiency [Unknown]
  - Cellulitis [Unknown]
  - Impaired healing [Not Recovered/Not Resolved]
  - Somnolence [Unknown]
  - Dermatitis [Unknown]
  - Fluid retention [Unknown]
  - Pain in extremity [Unknown]
  - Red blood cell count decreased [Unknown]
  - Leukaemia in remission [Unknown]
  - Product dose omission issue [Unknown]
